FAERS Safety Report 17779650 (Version 1)
Quarter: 2020Q2

REPORT INFORMATION
  Report Type: Spontaneous
  Country: FR (occurrence: FR)
  Receive Date: 20200514
  Receipt Date: 20200514
  Transmission Date: 20200714
  Serious: Yes (Other)
  Sender: FDA-Public Use
  Company Number: FR-ABBVIE-20K-056-3403029-00

PATIENT
  Age: 48 Year
  Sex: Female
  Weight: 122 kg

DRUGS (6)
  1. CEFTRIAXONE. [Suspect]
     Active Substance: CEFTRIAXONE
     Indication: COVID-19 TREATMENT
     Route: 048
     Dates: start: 20200414, end: 20200421
  2. RITONAVIR. [Suspect]
     Active Substance: RITONAVIR
     Indication: COVID-19 TREATMENT
     Route: 048
     Dates: start: 20200414, end: 20200415
  3. ROVAMYCINE [Suspect]
     Active Substance: SPIRAMYCIN
     Indication: COVID-19 TREATMENT
     Route: 048
     Dates: start: 20200414, end: 20200421
  4. DARUNAVIR [Suspect]
     Active Substance: DARUNAVIR
     Indication: COVID-19 TREATMENT
     Route: 048
     Dates: start: 20200414, end: 20200415
  5. CORTANCYL [Suspect]
     Active Substance: PREDNISONE
     Indication: COVID-19 TREATMENT
     Route: 048
     Dates: start: 20200414, end: 20200415
  6. KALETRA [Suspect]
     Active Substance: LOPINAVIR\RITONAVIR
     Indication: COVID-19 TREATMENT
     Route: 048
     Dates: start: 20200415, end: 20200428

REACTIONS (1)
  - Peripheral ischaemia [Not Recovered/Not Resolved]

NARRATIVE: CASE EVENT DATE: 20200420
